FAERS Safety Report 8559226-8 (Version None)
Quarter: 2012Q3

REPORT INFORMATION
  Report Type: 
  Country: None (occurrence: None)
  Receive Date: 20120720
  Receipt Date: 20120705
  Transmission Date: 20120928
  Serious: Yes (Other)
  Sender: FDA-Public Use
  Company Number: DSM-201200753

PATIENT
  Age: 57 Year
  Sex: Male
  Weight: 99.7913 kg

DRUGS (6)
  1. OLMESARTAN MEDOXOMIL/AMLODIPINE BESYLATE/HYDROCHLOROTHIAZIDE [Suspect]
     Indication: ESSENTIAL HYPERTENSION
     Dosage: 40/10/12.5 MG,ORAL
     Route: 048
     Dates: start: 20120103, end: 20120126
  2. ANTICOAGULANT (ANTITHROMBOTIC AGENTS) [Concomitant]
  3. ASS (ACETYLSALICYLIC ACID)(ACETYLSALICYLIC ACID) [Concomitant]
  4. DIURETICS NOS(DIURETICS) [Concomitant]
  5. ORAL ANTIDIABETICS (ORAL ANTIDIABETICS) [Concomitant]
  6. BETA BLOCKING AGENT NOS (BETA BLOCKING AGENTS) [Concomitant]

REACTIONS (2)
  - OEDEMA PERIPHERAL [None]
  - SWELLING FACE [None]
